FAERS Safety Report 5369919-1 (Version None)
Quarter: 2007Q2

REPORT INFORMATION
  Report Type: 
  Country: None (occurrence: None)
  Receive Date: 20070621
  Receipt Date: 20070619
  Transmission Date: 20071010
  Serious: Yes (Hospitalization)
  Sender: FDA-Public Use
  Company Number: 2007-02421

PATIENT
  Age: 69 Year
  Sex: Male

DRUGS (1)
  1. TRELSTAR [Suspect]
     Indication: PROSTATE CANCER
     Dosage: 15 MG, EVERY 4 MONTHS, INTRAMUSCULAR
     Route: 030
     Dates: start: 20060211, end: 20060603

REACTIONS (19)
  - BLOOD ALBUMIN DECREASED [None]
  - BLOOD BILIRUBIN INCREASED [None]
  - BLOOD BILIRUBIN UNCONJUGATED INCREASED [None]
  - BLOOD SODIUM DECREASED [None]
  - BONE LESION [None]
  - COLONIC POLYP [None]
  - DUODENITIS [None]
  - FATIGUE [None]
  - GASTRITIS [None]
  - GASTROOESOPHAGEAL REFLUX DISEASE [None]
  - HAEMATOCRIT DECREASED [None]
  - HIATUS HERNIA [None]
  - MEAN CELL VOLUME INCREASED [None]
  - METASTASES TO BONE [None]
  - POLYP COLORECTAL [None]
  - PROSTATIC SPECIFIC ANTIGEN INCREASED [None]
  - RED BLOOD CELL COUNT DECREASED [None]
  - RED BLOOD CELL SEDIMENTATION RATE INCREASED [None]
  - WEIGHT DECREASED [None]
